FAERS Safety Report 9462006 (Version 1)
Quarter: 2013Q3

REPORT INFORMATION
  Report Type: Spontaneous
  Country: CA (occurrence: CA)
  Receive Date: 20130816
  Receipt Date: 20130816
  Transmission Date: 20140515
  Serious: Yes (Hospitalization)
  Sender: FDA-Public Use
  Company Number: CA-ROCHE-1262444

PATIENT
  Age: 45 Year
  Sex: Female

DRUGS (4)
  1. MYCOPHENOLATE MOFETIL [Suspect]
     Indication: PRODUCT USED FOR UNKNOWN INDICATION
     Route: 065
  2. PROGRAF [Suspect]
     Indication: PRODUCT USED FOR UNKNOWN INDICATION
     Route: 065
  3. AVAPRO [Concomitant]
     Route: 065
  4. FOSINOPRIL [Concomitant]
     Route: 065

REACTIONS (8)
  - Normochromic normocytic anaemia [Unknown]
  - Post transplant lymphoproliferative disorder [Unknown]
  - Blood creatinine increased [Unknown]
  - Abdominal pain upper [Unknown]
  - Pyrexia [Unknown]
  - Fatigue [Unknown]
  - Weight decreased [Unknown]
  - Night sweats [Unknown]
